FAERS Safety Report 7879151-5 (Version None)
Quarter: 2011Q4

REPORT INFORMATION
  Report Type: 
  Country: None (occurrence: None)
  Receive Date: 20111101
  Receipt Date: 20111027
  Transmission Date: 20120403
  Serious: Yes (Death)
  Sender: FDA-Public Use
  Company Number: US-ACTELION-A-NJ2011-51560

PATIENT

DRUGS (2)
  1. REVATIO [Concomitant]
  2. VENTAVIS [Suspect]
     Indication: PULMONARY ARTERIAL HYPERTENSION
     Dosage: 6X/DAY
     Route: 055
     Dates: start: 20090706, end: 20110701

REACTIONS (1)
  - DEATH [None]
